FAERS Safety Report 7010018-0 (Version None)
Quarter: 2010Q3

REPORT INFORMATION
  Report Type: 
  Country: None (occurrence: None)
  Receive Date: 20100923
  Receipt Date: 20100915
  Transmission Date: 20110219
  Serious: Yes (Death, Other)
  Sender: FDA-Public Use
  Company Number: US-AMGEN-QUU438626

PATIENT
  Sex: Male

DRUGS (2)
  1. VECTIBIX [Suspect]
     Indication: PRODUCT USED FOR UNKNOWN INDICATION
     Dates: start: 20100507, end: 20100618
  2. GEMCITABINE [Concomitant]
     Dates: start: 20100101, end: 20100618

REACTIONS (2)
  - DRUG INEFFECTIVE [None]
  - HEAD AND NECK CANCER [None]
